FAERS Safety Report 15434434 (Version 5)
Quarter: 2019Q1

REPORT INFORMATION
  Report Type: Report from Study
  Country: US (occurrence: US)
  Receive Date: 20180927
  Receipt Date: 20190307
  Transmission Date: 20190417
  Serious: Yes (Other)
  Sender: FDA-Public Use
  Company Number: PHEH2018US039331

PATIENT
  Sex: Male

DRUGS (1)
  1. ENTRESTO [Suspect]
     Active Substance: SACUBITRIL\VALSARTAN
     Indication: CARDIAC FAILURE
     Dosage: UNK, BID
     Route: 048

REACTIONS (5)
  - Vision blurred [Recovered/Resolved with Sequelae]
  - Visual impairment [Unknown]
  - Dizziness [Recovered/Resolved with Sequelae]
  - Cataract [Recovered/Resolved]
  - Dizziness [Unknown]
